FAERS Safety Report 20141133 (Version 1)
Quarter: 2021Q4

REPORT INFORMATION
  Report Type: Spontaneous
  Country: US (occurrence: US)
  Receive Date: 20211202
  Receipt Date: 20211202
  Transmission Date: 20220303
  Serious: Yes (Death)
  Sender: FDA-Public Use
  Company Number: US-Blueprint Medicines Corporation-SP-US-2021-002357

PATIENT
  Age: 63 Year
  Sex: Female

DRUGS (1)
  1. AYVAKIT [Suspect]
     Active Substance: AVAPRITINIB
     Indication: Breast cancer
     Route: 048
     Dates: start: 20211028, end: 20211127

REACTIONS (2)
  - Death [Fatal]
  - Off label use [Unknown]
